FAERS Safety Report 8037205-7 (Version None)
Quarter: 2012Q1

REPORT INFORMATION
  Report Type: 
  Country: None (occurrence: None)
  Receive Date: 20120111
  Receipt Date: 20120102
  Transmission Date: 20120608
  Serious: Yes (Death)
  Sender: FDA-Public Use
  Company Number: US-BAYER-2012-001860

PATIENT
  Age: 19 Year
  Sex: Female

DRUGS (4)
  1. AMITRIPTYLINE HCL [Suspect]
  2. CYCLOBENZAPRINE [Suspect]
  3. NAPROXEN SODIUM [Suspect]
  4. ALPRAZOLAM [Suspect]

REACTIONS (3)
  - RESPIRATORY ARREST [None]
  - TOXICITY TO VARIOUS AGENTS [None]
  - CARDIAC ARREST [None]
